FAERS Safety Report 8244545-5 (Version None)
Quarter: 2012Q1

REPORT INFORMATION
  Report Type: 
  Country: None (occurrence: None)
  Receive Date: 20120329
  Receipt Date: 20120320
  Transmission Date: 20120608
  Serious: Yes (Hospitalization)
  Sender: FDA-Public Use
  Company Number: US-JNJFOC-20110709581

PATIENT
  Sex: Female
  Weight: 86.18 kg

DRUGS (22)
  1. METFORMIN HCL [Concomitant]
     Indication: DIABETES MELLITUS
     Route: 048
  2. ULTRAM [Concomitant]
     Indication: RHEUMATOID ARTHRITIS
     Route: 048
     Dates: start: 20110113
  3. JANUVIA [Concomitant]
     Route: 048
     Dates: start: 20110504
  4. VYTORIN [Concomitant]
     Indication: HYPERLIPIDAEMIA
     Dosage: 10 MG/40 MG
     Route: 048
  5. LEVOTHYROXINE SODIUM [Concomitant]
     Indication: HYPOTHYROIDISM
     Route: 048
  6. KLOR-CON [Concomitant]
     Route: 048
  7. FOLIC ACID [Concomitant]
     Route: 048
  8. GLYBURIDE [Concomitant]
     Indication: DIABETES MELLITUS
     Route: 048
     Dates: start: 20110607
  9. LASIX [Concomitant]
  10. GOLIMUMAB [Suspect]
     Route: 058
  11. CALCIUM CARBONATE [Concomitant]
     Route: 048
  12. INSULIN [Concomitant]
     Indication: RHEUMATOID ARTHRITIS
     Route: 048
     Dates: start: 20110120
  13. GABAPENTIN [Concomitant]
     Indication: DIABETIC NEUROPATHY
     Route: 048
  14. METOCLOPRAMIDE [Concomitant]
     Indication: HYPERTENSION
     Route: 048
  15. FISH OIL [Concomitant]
     Route: 048
  16. ALTACE [Concomitant]
     Indication: HYPERTENSION
     Route: 048
     Dates: start: 20090601
  17. METHOTREXATE [Concomitant]
     Indication: RHEUMATOID ARTHRITIS
     Route: 048
     Dates: start: 20071015
  18. DILTIAZEM HCL [Concomitant]
     Indication: HYPERTENSION
     Route: 048
  19. PERIACTIN [Concomitant]
  20. GOLIMUMAB [Suspect]
     Indication: RHEUMATOID ARTHRITIS
     Route: 058
     Dates: start: 20091228, end: 20110615
  21. NEXIUM [Concomitant]
     Indication: GASTROOESOPHAGEAL REFLUX DISEASE
     Route: 048
     Dates: start: 20090601
  22. LOTENSIN HCTZ [Concomitant]
     Dosage: 20 MG/25 MG

REACTIONS (2)
  - ASTHENIA [None]
  - CELLULITIS [None]
